FAERS Safety Report 17620921 (Version 2)
Quarter: 2020Q2

REPORT INFORMATION
  Report Type: Spontaneous
  Country: US (occurrence: US)
  Receive Date: 20200403
  Receipt Date: 20200417
  Transmission Date: 20200713
  Serious: No
  Sender: FDA-Public Use
  Company Number: US-GLAXOSMITHKLINE-US2020049307

PATIENT
  Sex: Male

DRUGS (1)
  1. ANORO ELLIPTA [Suspect]
     Active Substance: UMECLIDINIUM BROMIDE\VILANTEROL TRIFENATATE
     Indication: PRODUCT USED FOR UNKNOWN INDICATION
     Dosage: UNK,62.5/25MCG
     Route: 065
     Dates: start: 2018

REACTIONS (5)
  - Extra dose administered [Unknown]
  - Product residue present [Unknown]
  - Wrong technique in device usage process [Unknown]
  - Product complaint [Unknown]
  - Underdose [Unknown]
